FAERS Safety Report 8255360-0 (Version None)
Quarter: 2012Q2

REPORT INFORMATION
  Report Type: 
  Country: None (occurrence: None)
  Receive Date: 20120403
  Receipt Date: 20120326
  Transmission Date: 20120825
  Serious: Yes (Hospitalization)
  Sender: FDA-Public Use
  Company Number: US-BAYER-2012-023936

PATIENT
  Age: 32 Year
  Sex: Female
  Weight: 66.667 kg

DRUGS (10)
  1. OXYCODONE AND ACETAMINOPHEN [Concomitant]
     Dosage: 5-325 MG
     Route: 048
     Dates: start: 20071203, end: 20100206
  2. ATIVAN [Concomitant]
     Dosage: 1 MG, UNK
     Dates: start: 20090802
  3. DOCUSATE [Concomitant]
  4. DROSPIRENONE AND ETHINYL ESTRADIOL [Suspect]
     Dosage: UNK
     Dates: start: 20090401, end: 20090801
  5. YASMIN [Suspect]
     Dosage: UNK
     Dates: start: 20090401, end: 20090801
  6. MOTRIN [Concomitant]
     Dosage: UNK UNK, PRN
     Route: 048
     Dates: start: 20060821, end: 20090805
  7. OMEPRAZOLE [Concomitant]
     Dosage: 20 MG, UNK
     Route: 048
     Dates: start: 20090622, end: 20120126
  8. PREDNISONE TAB [Concomitant]
     Dosage: 20 MG, UNK
     Route: 048
     Dates: start: 20090504, end: 20101029
  9. ANUCORT-HC [Concomitant]
     Dosage: UNK
     Route: 054
     Dates: start: 20090622
  10. DARVOCET [Concomitant]

REACTIONS (6)
  - PULMONARY INFARCTION [None]
  - PAIN [None]
  - GENERAL PHYSICAL HEALTH DETERIORATION [None]
  - ANXIETY [None]
  - PULMONARY EMBOLISM [None]
  - EMOTIONAL DISTRESS [None]
